FAERS Safety Report 5482953-6 (Version None)
Quarter: 2007Q4

REPORT INFORMATION
  Report Type: 
  Country: None (occurrence: None)
  Receive Date: 20071011
  Receipt Date: 20070926
  Transmission Date: 20080405
  Serious: No
  Sender: FDA-Public Use
  Company Number: US-BOEHRINGER INGELHEIM PHARMACEUTICALS, INC.-2007-BP-21735BP

PATIENT
  Sex: Male

DRUGS (3)
  1. ATROVENT HFA [Suspect]
     Indication: ASTHMA
     Route: 055
     Dates: start: 20070401
  2. XOPENEX [Concomitant]
     Indication: ASTHMA
     Route: 055
     Dates: start: 20050101
  3. VITAMINS [Concomitant]

REACTIONS (3)
  - ABNORMAL BEHAVIOUR [None]
  - ANGER [None]
  - PSYCHOMOTOR HYPERACTIVITY [None]
